FAERS Safety Report 18892704 (Version 1)
Quarter: 2021Q1

REPORT INFORMATION
  Report Type: Spontaneous
  Country: US (occurrence: US)
  Receive Date: 20210215
  Receipt Date: 20210215
  Transmission Date: 20210420
  Serious: No
  Sender: FDA-Public Use
  Company Number: US-009507513-2102USA004838

PATIENT
  Sex: Female
  Weight: 58.96 kg

DRUGS (1)
  1. NEXPLANON [Suspect]
     Active Substance: ETONOGESTREL
     Dosage: 1 IMPLANT IN THE LEFT ARM
     Dates: start: 201804, end: 20210210

REACTIONS (2)
  - Device placement issue [Recovered/Resolved]
  - Complication associated with device [Recovered/Resolved]
